FAERS Safety Report 24702198 (Version 1)
Quarter: 2024Q4

REPORT INFORMATION
  Report Type: Spontaneous
  Country: CA (occurrence: CA)
  Receive Date: 20241205
  Receipt Date: 20241205
  Transmission Date: 20250114
  Serious: Yes (Other)
  Sender: LUNDBECK
  Company Number: CA-LUNDBECK-DKLU4007713

PATIENT

DRUGS (8)
  1. VIGABATRIN [Suspect]
     Active Substance: VIGABATRIN
     Indication: Tonic convulsion
  2. CLOBAZAM [Suspect]
     Active Substance: CLOBAZAM
     Indication: Tonic convulsion
  3. LEVETIRACETAM [Suspect]
     Active Substance: LEVETIRACETAM
     Indication: Tonic convulsion
  4. RUFINAMIDE [Suspect]
     Active Substance: RUFINAMIDE
     Indication: Tonic convulsion
  5. TOPIRAMATE [Suspect]
     Active Substance: TOPIRAMATE
     Indication: Tonic convulsion
  6. ALPHA LIPOIC ACID [Concomitant]
     Active Substance: .ALPHA.-LIPOIC ACID
     Indication: Product used for unknown indication
  7. UBIDECARENONE [Concomitant]
     Active Substance: UBIDECARENONE
     Indication: Product used for unknown indication
  8. VITAMIN B COMPLEX [Concomitant]
     Active Substance: CYANOCOBALAMIN\DEXPANTHENOL\NIACINAMIDE\PYRIDOXINE HYDROCHLORIDE\RIBOFLAVIN 5^-PHOSPHATE SODIUM\THIA
     Indication: Product used for unknown indication

REACTIONS (1)
  - Drug ineffective [Unknown]
